FAERS Safety Report 7746857-8 (Version None)
Quarter: 2011Q3

REPORT INFORMATION
  Report Type: 
  Country: None (occurrence: None)
  Receive Date: 20110913
  Receipt Date: 20110906
  Transmission Date: 20111222
  Serious: Yes (Hospitalization)
  Sender: FDA-Public Use
  Company Number: US-JNJFOC-20100704008

PATIENT
  Age: 72 Year
  Sex: Female
  Weight: 65.77 kg

DRUGS (2)
  1. TYLENOL-500 [Suspect]
     Dosage: TAKES 2. 2 TIME PER DAY
     Dates: start: 20100401, end: 20100620
  2. TYLENOL-500 [Suspect]
     Indication: ARTHRITIS
     Dosage: TAKES 2. 2 TIME PER DAY
     Dates: start: 20100401, end: 20100620

REACTIONS (3)
  - MUSCULAR WEAKNESS [None]
  - GASTRIC DISORDER [None]
  - PRODUCT QUALITY ISSUE [None]
